FAERS Safety Report 5239950-5 (Version None)
Quarter: 2007Q1

REPORT INFORMATION
  Report Type: 
  Country: None (occurrence: None)
  Receive Date: 20070216
  Receipt Date: 20070206
  Transmission Date: 20070707
  Serious: Yes (Other)
  Sender: FDA-Public Use
  Company Number: US-PFIZER INC-2007007622

PATIENT
  Sex: Female

DRUGS (16)
  1. CHANTIX [Suspect]
     Indication: SMOKING CESSATION THERAPY
     Dates: start: 20061220, end: 20070124
  2. PREDNISONE TAB [Suspect]
  3. PREVACID [Concomitant]
  4. MOBIC [Concomitant]
  5. FLUVOXAMINE MALEATE [Concomitant]
  6. PROSCAR [Concomitant]
  7. CLONAZEPAM [Concomitant]
  8. CALCIUM [Concomitant]
  9. CHONDROITIN/GLUCOSAMINE [Concomitant]
  10. LORATADINE [Concomitant]
  11. ONE-A-DAY [Concomitant]
  12. VITAMIN B COMPLEX CAP [Concomitant]
  13. ASCORBIC ACID [Concomitant]
  14. LINSEED OIL [Concomitant]
  15. RETINOL [Concomitant]
  16. ANTACID TAB [Concomitant]

REACTIONS (25)
  - ARTHRALGIA [None]
  - ARTHRITIS [None]
  - ASTHENIA [None]
  - BRONCHITIS [None]
  - CHEST PAIN [None]
  - EAR PAIN [None]
  - EYE DISORDER [None]
  - EYE PAIN [None]
  - FATIGUE [None]
  - GASTROOESOPHAGEAL REFLUX DISEASE [None]
  - HEADACHE [None]
  - INFLUENZA LIKE ILLNESS [None]
  - INSOMNIA [None]
  - MALAISE [None]
  - MUSCLE SPASMS [None]
  - MUSCULOSKELETAL PAIN [None]
  - PAIN [None]
  - SINUS DISORDER [None]
  - STOMACH DISCOMFORT [None]
  - TACHYCARDIA [None]
  - TONGUE DISORDER [None]
  - TREMOR [None]
  - VISION BLURRED [None]
  - VISUAL DISTURBANCE [None]
  - WEIGHT INCREASED [None]
